FAERS Safety Report 4438024-0 (Version None)
Quarter: 2004Q3

REPORT INFORMATION
  Report Type: 
  Country: None (occurrence: None)
  Receive Date: 20040831
  Receipt Date: 20040507
  Transmission Date: 20050211
  Serious: No
  Sender: FDA-Public Use
  Company Number: US-GLAXOSMITHKLINE-A0509991A

PATIENT
  Age: 24 Year
  Sex: Female

DRUGS (3)
  1. WELLBUTRIN XL [Suspect]
     Indication: DEPRESSION
     Dosage: 150MG PER DAY
     Route: 048
  2. TRAZODONE [Suspect]
  3. BIRTH CONTROL PILLS [Concomitant]

REACTIONS (2)
  - DECREASED APPETITE [None]
  - ENERGY INCREASED [None]
